FAERS Safety Report 8643778 (Version 8)
Quarter: 2016Q1

REPORT INFORMATION
  Report Type: Spontaneous
  Country: US (occurrence: US)
  Receive Date: 20120629
  Receipt Date: 20160222
  Transmission Date: 20160526
  Serious: Yes (Congenital Anomaly, Other)
  Sender: FDA-Public Use
  Company Number: US-PFIZER INC-2012153800

PATIENT
  Sex: Female
  Weight: 3 kg

DRUGS (24)
  1. SERTRALINE [Concomitant]
     Active Substance: SERTRALINE HYDROCHLORIDE
     Dosage: 100 MG, 2X/DAY
     Route: 064
     Dates: start: 20090525
  2. ZOLOFT [Suspect]
     Active Substance: SERTRALINE HYDROCHLORIDE
     Dosage: 100 MG, DAILY
     Route: 064
     Dates: start: 20080206
  3. DIAZEPAM. [Concomitant]
     Active Substance: DIAZEPAM
     Dosage: 5 MG, 2X/DAY
     Route: 064
     Dates: start: 20090204
  4. TRAMADOL. [Concomitant]
     Active Substance: TRAMADOL
     Dosage: 50 MG, 4X/DAY
     Route: 064
     Dates: start: 20090701
  5. CEPHALEXIN. [Concomitant]
     Active Substance: CEPHALEXIN
     Dosage: 250 MG, 3X/DAY
     Route: 064
     Dates: start: 20090904
  6. PRENATAL MUILTIVITAMIN [Concomitant]
     Dosage: UNK
     Route: 064
  7. LORTAB [Concomitant]
     Active Substance: ACETAMINOPHEN\HYDROCODONE BITARTRATE
     Indication: TOOTH ABSCESS
     Dosage: UNK
     Route: 064
     Dates: start: 20091027
  8. AZITHROMYCIN ANHYDROUS. [Concomitant]
     Active Substance: AZITHROMYCIN ANHYDROUS
     Dosage: 250 MG, UNK
     Route: 064
     Dates: start: 20090920
  9. HYDROCODONE-APAP [Concomitant]
     Active Substance: ACETAMINOPHEN\HYDROCODONE
     Dosage: 7.5MG/500MG, 3X/DAY
     Route: 064
     Dates: start: 20090213
  10. ERY-TAB [Concomitant]
     Active Substance: ERYTHROMYCIN
     Dosage: 500 MG, 4X/DAY
     Route: 064
     Dates: start: 20090319
  11. CEPHALEXIN. [Concomitant]
     Active Substance: CEPHALEXIN
     Dosage: 500 MG, 3X/DAY
     Route: 064
  12. ULTRAM [Concomitant]
     Active Substance: TRAMADOL HYDROCHLORIDE
     Dosage: 50 MG, UNK
     Route: 064
  13. TRAMADOL. [Concomitant]
     Active Substance: TRAMADOL
     Dosage: ONE TO TWO 50MG TABLETS, 4X/DAY
     Route: 064
     Dates: start: 20090820
  14. LORAZEPAM. [Concomitant]
     Active Substance: LORAZEPAM
     Dosage: 1 MG, 3X/DAY
     Route: 064
     Dates: start: 20090223
  15. SULFAMETHOXAZOLE-TRIMETHOPRIM (SMZ) [Concomitant]
     Active Substance: SULFAMETHOXAZOLE\TRIMETHOPRIM
     Dosage: 2X/DAY
     Route: 064
     Dates: start: 20090312
  16. LYRICA [Concomitant]
     Active Substance: PREGABALIN
     Dosage: 150 MG, 2X/DAY
     Route: 064
     Dates: start: 20090601
  17. HYDROCODONE-APAP [Concomitant]
     Active Substance: ACETAMINOPHEN\HYDROCODONE
     Dosage: 5MG/500MG, EVERY NIGHT AT BED TIME
     Route: 064
     Dates: start: 20090504
  18. HYDROCODONE-APAP [Concomitant]
     Active Substance: ACETAMINOPHEN\HYDROCODONE
     Dosage: 5MG/500MG, 4X/DAY
     Route: 064
     Dates: start: 20090904
  19. ABILIFY [Concomitant]
     Active Substance: ARIPIPRAZOLE
     Dosage: ONE TO TWO 5MG TABLETS, 1X/DAY
     Route: 064
     Dates: start: 20090213
  20. ZOLOFT [Suspect]
     Active Substance: SERTRALINE HYDROCHLORIDE
     Dosage: 100 MG, UNK
     Route: 064
  21. CARISOPRODOL. [Concomitant]
     Active Substance: CARISOPRODOL
     Dosage: 350 MG, 3X/DAY
     Route: 064
     Dates: start: 20090206
  22. CEPHALEXIN. [Concomitant]
     Active Substance: CEPHALEXIN
     Dosage: 1000 MG (500MG TWO CAPSULES), UNK
     Route: 064
     Dates: start: 20091027
  23. ZOLOFT [Suspect]
     Active Substance: SERTRALINE HYDROCHLORIDE
     Indication: BIPOLAR DISORDER
     Dosage: UNK
     Route: 064
     Dates: start: 1997, end: 200912
  24. TRAMADOL. [Concomitant]
     Active Substance: TRAMADOL
     Dosage: 50 MG, 3X/DAY
     Route: 064
     Dates: start: 20090205

REACTIONS (5)
  - Maternal exposure timing unspecified [Not Recovered/Not Resolved]
  - Patent ductus arteriosus [Not Recovered/Not Resolved]
  - Premature baby [Unknown]
  - Atrial septal defect [Not Recovered/Not Resolved]
  - Pulmonary valve stenosis [Not Recovered/Not Resolved]

NARRATIVE: CASE EVENT DATE: 20091029
